FAERS Safety Report 18319326 (Version 1)
Quarter: 2020Q3

REPORT INFORMATION
  Report Type: Other
  Country: GB (occurrence: GB)
  Receive Date: 20200928
  Receipt Date: 20200928
  Transmission Date: 20201103
  Serious: Yes (Other)
  Sender: FDA-Public Use
  Company Number: GB-NAVINTA LLC-000098

PATIENT
  Weight: 1.4 kg

DRUGS (2)
  1. INDOMETACIN [Suspect]
     Active Substance: INDOMETHACIN
     Indication: TRICUSPID VALVE DISEASE
     Dosage: 50 MG TDS (THREE TIMES A DAY)
  2. INDOMETACIN [Suspect]
     Active Substance: INDOMETHACIN
     Indication: TRICUSPID VALVE DISEASE
     Dosage: MATERNAL INDOMETHACIN 100MG THREE TIMES A DAY

REACTIONS (4)
  - Off label use [Recovered/Resolved]
  - Oligohydramnios [Recovered/Resolved]
  - Foetal growth restriction [Recovered/Resolved]
  - Condition aggravated [Recovered/Resolved]
